FAERS Safety Report 6003144-6 (Version None)
Quarter: 2008Q4

REPORT INFORMATION
  Report Type: 
  Country: None (occurrence: None)
  Receive Date: 20081216
  Receipt Date: 20081210
  Transmission Date: 20090506
  Serious: Yes (Hospitalization)
  Sender: FDA-Public Use
  Company Number: JP-JNJFOC-20081100952

PATIENT
  Sex: Male
  Weight: 57 kg

DRUGS (13)
  1. ITRIZOLE [Suspect]
     Route: 048
  2. ITRIZOLE [Suspect]
     Indication: ASPERGILLOMA
     Route: 048
  3. NOVOLIN R [Concomitant]
     Indication: DIABETES MELLITUS
     Route: 058
  4. VORICONAZOLE [Concomitant]
     Indication: ASPERGILLOMA
  5. DIGOSIN [Concomitant]
     Indication: ATRIAL FIBRILLATION
     Route: 048
  6. LIPITOR [Concomitant]
     Indication: HYPERLIPIDAEMIA
     Route: 048
  7. BASEN [Concomitant]
     Indication: DIABETES MELLITUS
     Route: 048
  8. DIOVAN [Concomitant]
     Indication: HYPERTENSION
     Route: 048
  9. CRAVIT [Concomitant]
     Indication: ATYPICAL MYCOBACTERIAL INFECTION
     Route: 048
  10. GASTER D [Concomitant]
     Indication: GASTRIC ULCER
     Route: 048
  11. CLARITHROMYCIN [Concomitant]
     Indication: ATYPICAL MYCOBACTERIAL INFECTION
     Route: 048
  12. LAC-B [Concomitant]
     Indication: DIARRHOEA
     Route: 048
  13. SELBEX [Concomitant]
     Indication: GASTRIC ULCER
     Route: 048

REACTIONS (3)
  - CARDIAC FAILURE [None]
  - INFECTION [None]
  - PULMONARY OEDEMA [None]
